FAERS Safety Report 21849494 (Version 1)
Quarter: 2023Q1

REPORT INFORMATION
  Report Type: Spontaneous
  Country: US (occurrence: US)
  Receive Date: 20230111
  Receipt Date: 20230111
  Transmission Date: 20230417
  Serious: No
  Sender: FDA-Public Use
  Company Number: US-TEVA-2023-US-2844260

PATIENT
  Age: 45 Year
  Sex: Female

DRUGS (8)
  1. AJOVY [Suspect]
     Active Substance: FREMANEZUMAB-VFRM
     Indication: Migraine
     Route: 065
  2. AJOVY [Suspect]
     Active Substance: FREMANEZUMAB-VFRM
  3. TOPAMAX [Concomitant]
     Active Substance: TOPIRAMATE
     Indication: Migraine
  4. TOPAMAX [Concomitant]
     Active Substance: TOPIRAMATE
     Indication: Seizure
  5. GABAPENTIN [Concomitant]
     Active Substance: GABAPENTIN
     Indication: Migraine
  6. METOPROLOL [Concomitant]
     Active Substance: METOPROLOL
     Indication: Hypertension
  7. METFORMIN [Concomitant]
     Active Substance: METFORMIN HYDROCHLORIDE
     Indication: Blood glucose abnormal
  8. LEVOTHYROXINE [Concomitant]
     Active Substance: LEVOTHYROXINE
     Indication: Thyroid disorder

REACTIONS (2)
  - Injection site pain [Not Recovered/Not Resolved]
  - Injection site erythema [Unknown]
